FAERS Safety Report 23067602 (Version 5)
Quarter: 2024Q3

REPORT INFORMATION
  Report Type: Spontaneous
  Country: PL (occurrence: PL)
  Receive Date: 20231016
  Receipt Date: 20240821
  Transmission Date: 20241016
  Serious: Yes (Hospitalization, Other)
  Sender: AUROBINDO
  Company Number: PL-POLPHARMA-469004

PATIENT
  Age: 55 Year
  Sex: Male

DRUGS (1)
  1. TENOFOVIR DISOPROXIL [Suspect]
     Active Substance: TENOFOVIR DISOPROXIL
     Indication: Chronic hepatitis B
     Dosage: 245 MILLIGRAM, ONCE A DAY
     Route: 065
     Dates: start: 2019

REACTIONS (5)
  - Cachexia [Recovered/Resolved]
  - Deformity thorax [Recovered/Resolved]
  - Fanconi syndrome acquired [Recovered/Resolved]
  - Metabolic acidosis [Recovered/Resolved]
  - Osteomalacia [Recovered/Resolved]
